FAERS Safety Report 5371533-9 (Version None)
Quarter: 2007Q2

REPORT INFORMATION
  Report Type: 
  Country: None (occurrence: None)
  Receive Date: 20070625
  Receipt Date: 20070615
  Transmission Date: 20071010
  Serious: Yes (Hospitalization)
  Sender: FDA-Public Use
  Company Number: US020305

PATIENT
  Age: 55 Year
  Sex: Female
  Weight: 97 kg

DRUGS (7)
  1. TRISENOX [Suspect]
     Indication: MULTIPLE MYELOMA
     Dosage: 0.25 MG/KG DAYS 1-5 INTRAVENOUS DRIP
     Route: 041
     Dates: start: 20070314, end: 20070318
  2. TRISENOX [Suspect]
     Indication: NEOPLASM RECURRENCE
     Dosage: 0.25 MG/KG DAYS 1-5 INTRAVENOUS DRIP
     Route: 041
     Dates: start: 20070314, end: 20070318
  3. TRISENOX [Suspect]
     Indication: MULTIPLE MYELOMA
     Dosage: 0.25 MG/KG ONCE A WEEK FOR 2 WEEKS OF 21 DAY CYCLE INTRAVENOUS DRIP
     Route: 041
     Dates: start: 20070409, end: 20070516
  4. TRISENOX [Suspect]
     Indication: NEOPLASM RECURRENCE
     Dosage: 0.25 MG/KG ONCE A WEEK FOR 2 WEEKS OF 21 DAY CYCLE INTRAVENOUS DRIP
     Route: 041
     Dates: start: 20070409, end: 20070516
  5. ASCORBIC ACID [Concomitant]
  6. BORTEZOMIB [Concomitant]
  7. ZYDONE [Concomitant]

REACTIONS (11)
  - ATRIAL FIBRILLATION [None]
  - CARDIOTOXICITY [None]
  - DISEASE PROGRESSION [None]
  - EJECTION FRACTION DECREASED [None]
  - FALL [None]
  - FATIGUE [None]
  - PAIN [None]
  - PERICARDIAL EFFUSION [None]
  - PLEURAL EFFUSION [None]
  - TACHYCARDIA [None]
  - VERTEBRAL INJURY [None]
